FAERS Safety Report 7722441-7 (Version None)
Quarter: 2011Q3

REPORT INFORMATION
  Report Type: 
  Country: None (occurrence: None)
  Receive Date: 20110831
  Receipt Date: 20100910
  Transmission Date: 20111222
  Serious: No
  Sender: FDA-Public Use
  Company Number: US-BAYER-201036086NA

PATIENT
  Age: 38 Year
  Sex: Female

DRUGS (2)
  1. VIVELLE-DOT [Concomitant]
     Dosage: UNK
     Dates: start: 20100801
  2. MIRENA [Suspect]
     Indication: CONTRACEPTION
     Dosage: 20 ?G/D, CONT
     Route: 015
     Dates: start: 20060421

REACTIONS (2)
  - HOT FLUSH [None]
  - MENORRHAGIA [None]
